FAERS Safety Report 8579584-8 (Version None)
Quarter: 2012Q3

REPORT INFORMATION
  Report Type: 
  Country: None (occurrence: None)
  Receive Date: 20120808
  Receipt Date: 20120731
  Transmission Date: 20120928
  Serious: Yes (Other)
  Sender: FDA-Public Use
  Company Number: JP-JNJFOC-20120801450

PATIENT
  Sex: Male

DRUGS (3)
  1. STELARA [Suspect]
     Indication: PSORIASIS
     Route: 058
     Dates: start: 20120629, end: 20120727
  2. ISONIAZID [Concomitant]
     Indication: ANTIBIOTIC PROPHYLAXIS
  3. ANTIBIOTIC [Suspect]
     Indication: PROPHYLAXIS
     Route: 048

REACTIONS (1)
  - LIVER DISORDER [None]
